FAERS Safety Report 21984098 (Version 2)
Quarter: 2023Q1

REPORT INFORMATION
  Report Type: Report from Study
  Country: US (occurrence: US)
  Receive Date: 20230213
  Receipt Date: 20230221
  Transmission Date: 20230417
  Serious: Yes (Death, Hospitalization, Other)
  Sender: FDA-Public Use
  Company Number: US-TORRENT-00012180

PATIENT
  Age: 55 Year
  Sex: Male

DRUGS (1)
  1. DAPSONE [Suspect]
     Active Substance: DAPSONE
     Indication: Product used for unknown indication
     Dosage: UNKNOWN
     Route: 048

REACTIONS (4)
  - Toxicity to various agents [Fatal]
  - Acute respiratory failure [Fatal]
  - Septic shock [Fatal]
  - Staphylococcal infection [Fatal]
